FAERS Safety Report 5186501-X (Version None)
Quarter: 2006Q4

REPORT INFORMATION
  Report Type: 
  Country: None (occurrence: None)
  Receive Date: 20061213
  Receipt Date: 20061207
  Transmission Date: 20070319
  Serious: Yes (Hospitalization, Other)
  Sender: FDA-Public Use
  Company Number: 2006SP006690

PATIENT
  Age: 56 Year
  Sex: Female
  Weight: 50 kg

DRUGS (11)
  1. TEMODAL [Suspect]
     Indication: EPILEPSY
     Dosage: 200 MG; PO
     Route: 048
     Dates: start: 20061017, end: 20061110
  2. TEMODAL [Suspect]
     Indication: PROPHYLAXIS
     Dosage: 200 MG; PO
     Route: 048
     Dates: start: 20061017, end: 20061110
  3. ZONEGRAN [Suspect]
     Indication: EPILEPSY
     Dosage: 200 MG; PO
     Route: 048
     Dates: start: 20061017, end: 20061110
  4. ZONEGRAN [Suspect]
     Indication: PROPHYLAXIS
     Dosage: 200 MG; PO
     Route: 048
     Dates: start: 20061017, end: 20061110
  5. ISOBIDE [Concomitant]
  6. DECADRON [Concomitant]
  7. ZOFRAN [Concomitant]
  8. TOUGHMAC E [Concomitant]
  9. GASTER D [Concomitant]
  10. BACTRIM [Concomitant]
  11. RADIATION THERAPY [Concomitant]

REACTIONS (4)
  - PLATELET COUNT DECREASED [None]
  - REFUSAL OF TREATMENT BY PATIENT [None]
  - STEVENS-JOHNSON SYNDROME [None]
  - WHITE BLOOD CELL COUNT DECREASED [None]
